FAERS Safety Report 19979464 (Version 2)
Quarter: 2021Q4

REPORT INFORMATION
  Report Type: Spontaneous
  Country: GR (occurrence: GR)
  Receive Date: 20211021
  Receipt Date: 20211027
  Transmission Date: 20220303
  Serious: Yes (Other)
  Sender: FDA-Public Use
  Company Number: GR-VIOFAR-0621325

PATIENT
  Age: 69 Year
  Sex: Male

DRUGS (3)
  1. RISPERIDONE [Suspect]
     Active Substance: RISPERIDONE
     Indication: Delusion
     Dosage: UNK
  2. RISPERIDONE [Suspect]
     Active Substance: RISPERIDONE
     Indication: Illusion
  3. RISPERIDONE [Suspect]
     Active Substance: RISPERIDONE
     Indication: Hallucinations, mixed

REACTIONS (4)
  - Epilepsy [Unknown]
  - Parkinsonism [Unknown]
  - Myoclonus [Unknown]
  - Tremor [Unknown]
